FAERS Safety Report 10286831 (Version 1)
Quarter: 2014Q3

REPORT INFORMATION
  Report Type: Report from Study
  Country: DE (occurrence: NL)
  Receive Date: 20140709
  Receipt Date: 20140709
  Transmission Date: 20150326
  Serious: Yes (Death)
  Sender: FDA-Public Use
  Company Number: DE-ACTELION-A-US2014-101797

PATIENT
  Age: 56 Year
  Sex: Male

DRUGS (1)
  1. VENTAVIS [Suspect]
     Active Substance: ILOPROST
     Indication: PULMONARY ARTERIAL HYPERTENSION
     Dosage: 30 (6 X 5)
     Route: 055
     Dates: start: 20121001, end: 20140322

REACTIONS (1)
  - Death [Fatal]

NARRATIVE: CASE EVENT DATE: 20140322
